FAERS Safety Report 5674762-X (Version None)
Quarter: 2008Q1

REPORT INFORMATION
  Report Type: 
  Country: None (occurrence: None)
  Receive Date: 20080319
  Receipt Date: 20080319
  Transmission Date: 20080703
  Serious: Yes (Life-Threatening, Other)
  Sender: FDA-Public Use
  Company Number: None

PATIENT
  Age: 66 Year
  Sex: Female
  Weight: 71.2147 kg

DRUGS (2)
  1. AMPICILLIN AND SULBACTAM [Suspect]
     Indication: PREOPERATIVE CARE
     Dosage: 1.5 GRAM ONE TIME DOSE IV BOLUS
     Route: 040
     Dates: start: 20080130, end: 20080130
  2. AMPICILLIN AND SULBACTAM [Suspect]
     Indication: PREOPERATIVE CARE
     Dosage: 1.5 GRAM ONE TIME DOSE IV BOLUS
     Route: 040
     Dates: start: 20080130, end: 20080130

REACTIONS (4)
  - ANXIETY [None]
  - DYSPNOEA [None]
  - HYPERTENSION [None]
  - INFUSION RELATED REACTION [None]
